FAERS Safety Report 7337795-3 (Version None)
Quarter: 2011Q1

REPORT INFORMATION
  Report Type: 
  Country: None (occurrence: None)
  Receive Date: 20110210
  Receipt Date: 20110113
  Transmission Date: 20110831
  Serious: Yes (Other)
  Sender: FDA-Public Use
  Company Number: 1000016222

PATIENT
  Age: 50 Year
  Sex: Male

DRUGS (11)
  1. AMLODIPINE [Concomitant]
  2. LOVASTATIN (LOVASTATIN) (LOVASTATIN) [Concomitant]
  3. OXYCODONE/ACETAMINOPHEN (OXYCODONE, ACETAMINOPHEN) (OXYCODONE, ACETAMI [Concomitant]
  4. OMEPRAZOLE [Concomitant]
  5. ZOLPIDEM (ZOLPIDEM) (ZOLPIDEM) [Concomitant]
  6. SAVELLA [Suspect]
     Indication: PAIN
     Dosage: 12.5 MG (12.5 MG, 1 IN 1 D), ORAL, 25 MG (12.5 MG, 2 IN 1 D), ORAL, 50 MG (25 MG, 2 IN 1 D), ORAL,
     Route: 048
     Dates: start: 20100910
  7. SAVELLA [Suspect]
     Indication: PAIN
     Dosage: 12.5 MG (12.5 MG, 1 IN 1 D), ORAL, 25 MG (12.5 MG, 2 IN 1 D), ORAL, 50 MG (25 MG, 2 IN 1 D), ORAL,
     Route: 048
     Dates: start: 20100908, end: 20100909
  8. SAVELLA [Suspect]
     Indication: PAIN
     Dosage: 12.5 MG (12.5 MG, 1 IN 1 D), ORAL, 25 MG (12.5 MG, 2 IN 1 D), ORAL, 50 MG (25 MG, 2 IN 1 D), ORAL,
     Route: 048
     Dates: start: 20100907, end: 20100907
  9. SAVELLA [Suspect]
     Indication: PAIN
     Dosage: 50 MG (25 MG, 2 IN 1 D), ORAL
     Route: 048
     Dates: start: 20100910, end: 20100913
  10. BENAZEPRIL (BENAZEPRIL) (BENAZEPRIL) [Concomitant]
  11. DIAZEPAM [Concomitant]

REACTIONS (3)
  - SUICIDAL IDEATION [None]
  - DYSURIA [None]
  - URINARY RETENTION [None]
